FAERS Safety Report 4642087-7 (Version None)
Quarter: 2005Q2

REPORT INFORMATION
  Report Type: 
  Country: None (occurrence: None)
  Receive Date: 20050422
  Receipt Date: 20050412
  Transmission Date: 20051028
  Serious: Yes (Other)
  Sender: FDA-Public Use
  Company Number: PHBS2005BR05228

PATIENT
  Age: 40 Year
  Sex: Female

DRUGS (1)
  1. CODATEN [Suspect]

REACTIONS (4)
  - CHEST PAIN [None]
  - FEELING ABNORMAL [None]
  - NAUSEA [None]
  - RETCHING [None]
